FAERS Safety Report 7833194-6 (Version None)
Quarter: 2011Q4

REPORT INFORMATION
  Report Type: 
  Country: None (occurrence: None)
  Receive Date: 20111024
  Receipt Date: 20111012
  Transmission Date: 20120403
  Serious: Yes (Other)
  Sender: FDA-Public Use
  Company Number: JP-JNJFOC-20111006221

PATIENT
  Age: 60 Year
  Sex: Male

DRUGS (3)
  1. REMICADE [Suspect]
     Indication: PSORIASIS
     Route: 042
     Dates: start: 20100415
  2. METHOTREXATE [Suspect]
     Indication: PSORIASIS
     Route: 048
  3. ETRETINATE [Suspect]
     Indication: PSORIASIS
     Route: 065
     Dates: start: 20090801

REACTIONS (2)
  - CONDITION AGGRAVATED [None]
  - SKIN EXFOLIATION [None]
